FAERS Safety Report 14752410 (Version 1)
Quarter: 2018Q2

REPORT INFORMATION
  Report Type: Other
  Country: ES (occurrence: ES)
  Receive Date: 20180412
  Receipt Date: 20180412
  Transmission Date: 20180711
  Serious: Yes (Life-Threatening, Other)
  Sender: FDA-Public Use
  Company Number: ES-GLENMARK PHARMACEUTICALS-2018GMK034111

PATIENT

DRUGS (3)
  1. MEROPENEM. [Suspect]
     Active Substance: MEROPENEM
     Indication: ANTIBIOTIC THERAPY
     Dosage: UNK
     Route: 065
  2. PIPERACILLIN W/TAZOBACTAM          /01173601/ [Suspect]
     Active Substance: PIPERACILLIN SODIUM\TAZOBACTAM SODIUM
     Indication: ANTIBIOTIC THERAPY
     Dosage: UNK
     Route: 065
  3. LINEZOLID. [Suspect]
     Active Substance: LINEZOLID
     Indication: ANTIBIOTIC THERAPY
     Dosage: UNK
     Route: 065

REACTIONS (2)
  - Acute kidney injury [Unknown]
  - Thrombocytopenia [Unknown]
